FAERS Safety Report 4916118-0 (Version None)
Quarter: 2006Q1

REPORT INFORMATION
  Report Type: 
  Country: None (occurrence: None)
  Receive Date: 20060217
  Receipt Date: 20050412
  Transmission Date: 20060701
  Serious: Yes (Hospitalization)
  Sender: FDA-Public Use
  Company Number: US-MERCK-0504USA02018

PATIENT
  Age: 56 Year
  Sex: Female

DRUGS (4)
  1. VIOXX [Suspect]
     Route: 048
  2. PREMARIN [Concomitant]
     Route: 065
  3. PROZAC [Concomitant]
     Route: 065
  4. BUSPAR [Concomitant]
     Route: 065

REACTIONS (11)
  - ANAEMIA POSTOPERATIVE [None]
  - ANGINA UNSTABLE [None]
  - ATRIOVENTRICULAR BLOCK FIRST DEGREE [None]
  - BACK PAIN [None]
  - CHEST PAIN [None]
  - HYPERGLYCAEMIA [None]
  - HYPERLIPIDAEMIA [None]
  - HYPOTENSION [None]
  - INJURY [None]
  - PROCEDURAL HYPOTENSION [None]
  - THROMBOCYTOPENIA [None]
